FAERS Safety Report 8933581 (Version 1)
Quarter: 2012Q4

REPORT INFORMATION
  Report Type: 
  Country: JP (occurrence: JP)
  Receive Date: 20121128
  Receipt Date: 20121128
  Transmission Date: 20130627
  Serious: Yes (Death, Other)
  Sender: FDA-Public Use
  Company Number: JP-JHP PHARMACEUTICALS, LLC-JHP201200549

PATIENT
  Age: 69 Year
  Sex: Male

DRUGS (5)
  1. DANTRIUM [Suspect]
     Indication: NEUROLEPTIC MALIGNANT SYNDROME
     Dosage: UNK
     Dates: start: 2010
  2. AMANTADINE HYDROCHLORIDE [Concomitant]
     Indication: PARKINSON^S DISEASE
     Dosage: UNK
     Route: 048
     Dates: start: 2010
  3. RISPERIDONE [Concomitant]
     Indication: DELIRIUM
     Dosage: UNK
     Dates: start: 2010
  4. FLUID REPLACEMENT [Concomitant]
     Dosage: UNK
     Dates: start: 2010
  5. ANTIBIOTICS [Concomitant]
     Dosage: UNK
     Dates: start: 2010

REACTIONS (3)
  - Cardio-respiratory arrest [Fatal]
  - Drug ineffective [Unknown]
  - Neuroleptic malignant syndrome [Unknown]
